FAERS Safety Report 11157322 (Version 1)
Quarter: 2015Q2

REPORT INFORMATION
  Report Type: Other
  Country: CN (occurrence: CN)
  Receive Date: 20150603
  Receipt Date: 20150603
  Transmission Date: 20150821
  Serious: Yes (Hospitalization)
  Sender: FDA-Public Use
  Company Number: CN-LUPIN PHARMACEUTICALS INC.-2015-01529

PATIENT
  Age: 28 Year
  Sex: Female

DRUGS (4)
  1. COMPOUND VITAMIN B [Concomitant]
     Indication: NEURALGIA
     Route: 065
  2. TOPIRAMATE. [Suspect]
     Active Substance: TOPIRAMATE
     Indication: NEURALGIA
     Route: 048
  3. PREGABALIN. [Suspect]
     Active Substance: PREGABALIN
     Indication: NEURALGIA
     Route: 048
  4. NEUROTROPIN [Suspect]
     Active Substance: NEUROTROPIN
     Indication: NEURALGIA
     Dosage: 8 NEUROTROPIN UNITS TWICE DAILY
     Route: 065

REACTIONS (2)
  - Neuropsychiatric syndrome [Recovered/Resolved]
  - Thrombocytopenia [Recovered/Resolved]
